FAERS Safety Report 4844572-1 (Version None)
Quarter: 2005Q4

REPORT INFORMATION
  Report Type: 
  Country: None (occurrence: None)
  Receive Date: 20051129
  Receipt Date: 20051116
  Transmission Date: 20060501
  Serious: Yes (Hospitalization)
  Sender: FDA-Public Use
  Company Number: 11791

PATIENT
  Age: 16 Year
  Sex: Female

DRUGS (5)
  1. METHOTREXATE [Suspect]
     Indication: BONE SARCOMA
     Dosage: 1200 MG/M2 PER_CYCLE IV
     Route: 042
     Dates: start: 20050328, end: 20050328
  2. METHOTREXATE [Suspect]
  3. METHOTREXATE [Suspect]
  4. METHOTREXATE [Suspect]
     Indication: BONE SARCOMA
     Dosage: 12 G/M2 IV
     Route: 042
     Dates: start: 20050531, end: 20050531
  5. DILAUDID [Concomitant]

REACTIONS (8)
  - APHASIA [None]
  - ASTHENIA [None]
  - DRUG INEFFECTIVE [None]
  - DYSARTHRIA [None]
  - DYSPHAGIA [None]
  - NEUROTOXICITY [None]
  - SOMNOLENCE [None]
  - THERAPEUTIC AGENT TOXICITY [None]
